FAERS Safety Report 18854703 (Version 1)
Quarter: 2021Q1

REPORT INFORMATION
  Report Type: Spontaneous
  Country: CA (occurrence: CA)
  Receive Date: 20210206
  Receipt Date: 20210206
  Transmission Date: 20210420
  Serious: Yes (Hospitalization, Other)
  Sender: FDA-Public Use
  Company Number: CA-GRANULES-CA-2021GRALIT00089

PATIENT
  Age: 16 Year
  Sex: Female
  Weight: 76 kg

DRUGS (4)
  1. PRAZOSIN. [Suspect]
     Active Substance: PRAZOSIN
     Indication: SLEEP DISORDER
     Dosage: 2 TABLETS
     Route: 048
  2. ACETAMINOPHEN. [Suspect]
     Active Substance: ACETAMINOPHEN
     Indication: PRODUCT USED FOR UNKNOWN INDICATION
     Dosage: 325 TABLETS
     Route: 065
  3. NAPROXEN. [Suspect]
     Active Substance: NAPROXEN
     Indication: PRODUCT USED FOR UNKNOWN INDICATION
     Dosage: 250 TABLETS
     Route: 048
  4. NAPROXEN. [Suspect]
     Active Substance: NAPROXEN
     Dosage: 72 TABLETS
     Route: 048

REACTIONS (9)
  - Electrocardiogram QT prolonged [Recovered/Resolved]
  - Somnolence [Unknown]
  - Vomiting [Unknown]
  - Metabolic acidosis [Unknown]
  - Renal impairment [Recovered/Resolved]
  - Toxicity to various agents [Unknown]
  - Sinus tachycardia [Unknown]
  - Altered state of consciousness [Unknown]
  - Intentional overdose [Unknown]
